FAERS Safety Report 21199680 (Version 2)
Quarter: 2022Q4

REPORT INFORMATION
  Report Type: Spontaneous
  Country: FR (occurrence: FR)
  Receive Date: 20220811
  Receipt Date: 20221027
  Transmission Date: 20230113
  Serious: Yes (Death, Other)
  Sender: FDA-Public Use
  Company Number: FR-CELLTRION INC.-2022FR012775

PATIENT

DRUGS (10)
  1. RITUXIMAB [Suspect]
     Active Substance: RITUXIMAB
     Indication: Anti-neutrophil cytoplasmic antibody positive vasculitis
     Dosage: 375 MG/M2 OF BODY SURFACE AREA, 4 WEEKLY INFUSIONS (REMISSION INDUCTION THERAPY)
  2. RITUXIMAB [Suspect]
     Active Substance: RITUXIMAB
     Dosage: 2 INFUSIONS OF 1000 MG, EVERY 2 WEEKS (REMISSION INDUCTION THERAPY)
  3. RITUXIMAB [Suspect]
     Active Substance: RITUXIMAB
     Dosage: 500 MG, UNKNOWN (MAINTENANCE) ADMINISTERED 4 OR 5 TIMES, WITH EACH INFUSION SPACED 6 MONTHS APART.(M
     Route: 042
  4. RITUXIMAB [Suspect]
     Active Substance: RITUXIMAB
     Dosage: UNK (INDUCTION THERAPY);UNK (INDUCTION) 4 WEEKLY RITUXIMAB INFUSIONS OF 375 MG/M2 OF BODY SURFACE AR
  5. RITUXIMAB [Suspect]
     Active Substance: RITUXIMAB
     Dosage: UNK
     Route: 042
  6. RITUXIMAB [Suspect]
     Active Substance: RITUXIMAB
     Dosage: UNK (4 WEEKLY RITUXIMAB INFUSIONS OF 375 MG/M2 OF BODY SURFACE AREA OR 2 INFUSIONS OF 1000 MG
     Route: 042
  7. METHOTREXATE [Suspect]
     Active Substance: METHOTREXATE
     Indication: Anti-neutrophil cytoplasmic antibody positive vasculitis
  8. CYCLOPHOSPHAMIDE [Concomitant]
     Active Substance: CYCLOPHOSPHAMIDE
     Indication: Anti-neutrophil cytoplasmic antibody positive vasculitis
     Dosage: UNK (PREVIOUS INDUCTION THERAPY
  9. PREDNISONE [Concomitant]
     Active Substance: PREDNISONE
     Indication: Anti-neutrophil cytoplasmic antibody positive vasculitis
     Dosage: 10 MG, QD
  10. PREDNISONE [Concomitant]
     Active Substance: PREDNISONE
     Dosage: 20 MG, QD

REACTIONS (24)
  - Death [Fatal]
  - Anti-neutrophil cytoplasmic antibody positive vasculitis [Unknown]
  - Immunodeficiency [Unknown]
  - Immunodeficiency [Unknown]
  - Immunodeficiency [Unknown]
  - Cholecystitis infective [Unknown]
  - Pyelonephritis [Unknown]
  - Pyelonephritis [Unknown]
  - Pneumonia [Unknown]
  - Bacteraemia [Unknown]
  - Pneumonia pseudomonal [Unknown]
  - Arthritis bacterial [Unknown]
  - Arthritis bacterial [Unknown]
  - Pneumonia bacterial [Unknown]
  - Pseudomonal bacteraemia [Unknown]
  - Pseudomonas infection [Unknown]
  - Osteomyelitis bacterial [Unknown]
  - Pulmonary nocardiosis [Unknown]
  - Pneumonia [Unknown]
  - Septic shock [Unknown]
  - Respiratory tract infection viral [Unknown]
  - Influenza [Unknown]
  - Ophthalmic herpes zoster [Unknown]
  - Pneumonia bacterial [Unknown]
